FAERS Safety Report 9912378 (Version 2)
Quarter: 2014Q1

REPORT INFORMATION
  Report Type: Spontaneous
  Country: US (occurrence: US)
  Receive Date: 20140220
  Receipt Date: 20140220
  Transmission Date: 20141002
  Serious: Yes (Life-Threatening, Other)
  Sender: FDA-Public Use
  Company Number: US-BEH-2013035141

PATIENT
  Sex: Female

DRUGS (1)
  1. HIZENTRA [Suspect]
     Route: 058

REACTIONS (5)
  - Anaphylactic shock [Unknown]
  - Hypersensitivity [Unknown]
  - Drug intolerance [Unknown]
  - Local reaction [Recovered/Resolved]
  - Urticaria [Recovered/Resolved]
